FAERS Safety Report 4552678-X (Version None)
Quarter: 2005Q1

REPORT INFORMATION
  Report Type: 
  Country: None (occurrence: None)
  Receive Date: 20050114
  Receipt Date: 20041004
  Transmission Date: 20050727
  Serious: Yes (Death)
  Sender: FDA-Public Use
  Company Number: PHFR2004GB03696

PATIENT
  Age: 40 Year
  Sex: Female
  Weight: 92 kg

DRUGS (3)
  1. VALPROATE SODIUM [Concomitant]
     Indication: EPILEPSY
  2. CARBAMAZEPINE [Suspect]
     Indication: EPILEPSY
  3. CLOZAPINE [Suspect]
     Route: 048

REACTIONS (3)
  - EPILEPSY [None]
  - SUDDEN DEATH [None]
  - TONGUE BITING [None]
